FAERS Safety Report 24753091 (Version 1)
Quarter: 2024Q4

REPORT INFORMATION
  Report Type: Report from Study
  Country: IN (occurrence: IN)
  Receive Date: 20241219
  Receipt Date: 20241219
  Transmission Date: 20250114
  Serious: Yes (Congenital Anomaly, Other)
  Sender: UCB
  Company Number: IN-UCBSA-2024065526

PATIENT

DRUGS (2)
  1. LEVETIRACETAM [Suspect]
     Active Substance: LEVETIRACETAM
     Indication: Epilepsy
     Dosage: UNK
     Route: 064
  2. PHENOBARBITAL SODIUM [Concomitant]
     Active Substance: PHENOBARBITAL SODIUM
     Indication: Epilepsy
     Dosage: UNK

REACTIONS (3)
  - Cleft palate [Unknown]
  - Genitalia external ambiguous [Unknown]
  - Maternal exposure during pregnancy [Unknown]
